FAERS Safety Report 5746888-3 (Version None)
Quarter: 2008Q2

REPORT INFORMATION
  Report Type: 
  Country: None (occurrence: None)
  Receive Date: 20080522
  Receipt Date: 20080519
  Transmission Date: 20081010
  Serious: Yes (Other)
  Sender: FDA-Public Use
  Company Number: GB-WYE-G01555808

PATIENT
  Age: 2 Year
  Sex: Male

DRUGS (5)
  1. IBUPROFEN [Suspect]
     Indication: ARTHRITIS
     Route: 048
     Dates: start: 20040101
  2. TRIAMCINOLONE [Concomitant]
     Dosage: UNKNOWN
     Dates: start: 20040201
  3. IRON [Concomitant]
     Dates: start: 20040801
  4. METHOTREXATE [Suspect]
     Indication: ARTHRITIS
     Route: 058
     Dates: start: 20030801, end: 20040129
  5. PIROXICAM [Concomitant]
     Indication: ARTHRITIS
     Dosage: UNKNOWN
     Route: 048
     Dates: start: 20040101

REACTIONS (2)
  - ALANINE AMINOTRANSFERASE INCREASED [None]
  - SPONDYLITIS [None]
